FAERS Safety Report 25223751 (Version 5)
Quarter: 2025Q4

REPORT INFORMATION
  Report Type: Report from Study
  Country: EU (occurrence: EU)
  Receive Date: 20250422
  Receipt Date: 20251105
  Transmission Date: 20260118
  Serious: Yes (Other)
  Sender: ABBVIE
  Company Number: EU-ABBVIE-6231678

PATIENT
  Age: 48 Year
  Sex: Female

DRUGS (7)
  1. CARBIDOPA\LEVODOPA [Suspect]
     Active Substance: CARBIDOPA\LEVODOPA
     Indication: Product used for unknown indication
     Dosage: MORNING DOSE: 3.5ML; CONTINUOUS RATE: 4.5 ML/H (2.3 ML/H AT NIGHT); EXTRA DOSE: 2.0ML
     Route: 050
     Dates: start: 20240201
  2. CARBIDOPA\LEVODOPA [Suspect]
     Active Substance: CARBIDOPA\LEVODOPA
     Dosage: MORNING DOSE: 4.5ML; CONTINUOUS RATE: 4.5 ML/H (2.3 ML/H AT NIGHT); EXTRA DOSE: 2.0ML
     Route: 050
  3. CARBIDOPA\LEVODOPA [Suspect]
     Active Substance: CARBIDOPA\LEVODOPA
     Dosage: MD: 4.5ML; CR: 4.0 ML/H (2.3 ML/H AT NIGHT); ED: 2.0ML(24-HOUR ADMINISTRATION)
     Route: 050
  4. CARBIDOPA\LEVODOPA [Suspect]
     Active Substance: CARBIDOPA\LEVODOPA
     Dosage: MD: 4.5ML,CR: 4.1ML/H (2.3ML/H AT NIGHT), ED: 2.0ML 24H ADMINISTRATION
     Route: 050
  5. LEVOTHYROXINE [Concomitant]
     Active Substance: LEVOTHYROXINE
     Indication: Product used for unknown indication
     Route: 048
  6. FERROUS SUCCINATE [Concomitant]
     Active Substance: FERROUS SUCCINATE
     Indication: Product used for unknown indication
     Dosage: FREQUENCY: 1 AMPOULE X 1
     Route: 048
  7. STALEVO [Concomitant]
     Active Substance: CARBIDOPA\ENTACAPONE\LEVODOPA
     Indication: Product used for unknown indication
     Dosage: UNIT DOSE: 125 MG?FREQUENCY TEXT: 2X1 (AT NIGHT)
     Route: 048

REACTIONS (9)
  - Neuroprosthesis implantation [Recovered/Resolved]
  - Multiple system atrophy [Not Recovered/Not Resolved]
  - Fall [Unknown]
  - Stoma site erythema [Recovered/Resolved]
  - Stoma site discharge [Recovered/Resolved]
  - Gait disturbance [Not Recovered/Not Resolved]
  - Balance disorder [Unknown]
  - Speech disorder [Not Recovered/Not Resolved]
  - Salivary hypersecretion [Not Recovered/Not Resolved]

NARRATIVE: CASE EVENT DATE: 20240801
